FAERS Safety Report 7690761-0 (Version None)
Quarter: 2011Q3

REPORT INFORMATION
  Report Type: 
  Country: None (occurrence: None)
  Receive Date: 20110818
  Receipt Date: 20110810
  Transmission Date: 20111222
  Serious: Yes (Hospitalization)
  Sender: FDA-Public Use
  Company Number: FR-SANOFI-AVENTIS-2011SA051129

PATIENT
  Age: 71 Year
  Sex: Male

DRUGS (10)
  1. OLMESARTAN MEDOXOMIL [Suspect]
     Route: 048
     Dates: end: 20110529
  2. CRESTOR [Concomitant]
     Route: 048
  3. LEVOTHYROXINE SODIUM [Concomitant]
     Route: 048
  4. ASPIRIN [Concomitant]
     Route: 048
  5. PLAVIX [Concomitant]
     Route: 048
  6. EZETIMIBE [Concomitant]
     Route: 048
  7. SERETIDE [Concomitant]
     Indication: RESPIRATORY DISORDER
     Dosage: DOSE:1 UNIT(S)
     Route: 055
  8. SPIRIVA [Concomitant]
     Indication: RESPIRATORY DISORDER
     Dosage: DOSE:1 UNIT(S)
     Route: 055
  9. LASIX [Suspect]
     Route: 048
     Dates: end: 20110529
  10. IKOREL [Concomitant]
     Route: 048

REACTIONS (2)
  - HYPERKALAEMIA [None]
  - RENAL FAILURE ACUTE [None]
